FAERS Safety Report 25459544 (Version 1)
Quarter: 2025Q2

REPORT INFORMATION
  Report Type: Report from Study
  Country: DE (occurrence: DE)
  Receive Date: 20250620
  Receipt Date: 20250620
  Transmission Date: 20250717
  Serious: Yes (Other)
  Sender: ALEXION PHARMACEUTICALS
  Company Number: DE-ASTRAZENECA-202506GLO010507DE

PATIENT
  Age: 69 Year
  Weight: 62 kg

DRUGS (3)
  1. DURVALUMAB [Suspect]
     Active Substance: DURVALUMAB
     Indication: Breast cancer
  2. GEMCITABINE [Concomitant]
     Active Substance: GEMCITABINE
  3. CISPLATIN [Concomitant]
     Active Substance: CISPLATIN

REACTIONS (2)
  - Diarrhoea haemorrhagic [Recovered/Resolved]
  - Amnesia [Not Recovered/Not Resolved]
